FAERS Safety Report 6006894-0 (Version None)
Quarter: 2008Q4

REPORT INFORMATION
  Report Type: 
  Country: None (occurrence: None)
  Receive Date: 20081217
  Receipt Date: 20081205
  Transmission Date: 20090506
  Serious: Yes (Other)
  Sender: FDA-Public Use
  Company Number: FR-ROCHE-601454

PATIENT
  Sex: Female
  Weight: 69 kg

DRUGS (2)
  1. CAPECITABINE [Suspect]
     Dosage: 825 MG/M^2, 2XPER DAY, FROM D1-14
     Route: 048
     Dates: start: 20080905
  2. DOCETAXEL [Suspect]
     Dosage: 75MG/M^2 ON DAY 1
     Route: 042
     Dates: start: 20080905

REACTIONS (13)
  - AEROPHAGIA [None]
  - ANOREXIA [None]
  - ASTHENIA [None]
  - COUGH [None]
  - DIARRHOEA [None]
  - FALL [None]
  - GASTROOESOPHAGEAL REFLUX DISEASE [None]
  - GENERAL PHYSICAL HEALTH DETERIORATION [None]
  - NAUSEA [None]
  - PALMAR-PLANTAR ERYTHRODYSAESTHESIA SYNDROME [None]
  - PYREXIA [None]
  - VULVOVAGINAL DISCOMFORT [None]
  - WEIGHT DECREASED [None]
